FAERS Safety Report 6122382-5 (Version None)
Quarter: 2009Q1

REPORT INFORMATION
  Report Type: 
  Country: None (occurrence: None)
  Receive Date: 20090318
  Receipt Date: 20090115
  Transmission Date: 20090719
  Serious: Yes (Hospitalization)
  Sender: FDA-Public Use
  Company Number: US-ASTRAZENECA-2009UW01361

PATIENT
  Age: 52 Year
  Sex: Female

DRUGS (9)
  1. SYMBICORT [Suspect]
     Dosage: 160/4.5 TWO INHALATIONS TWO TIMES DAILY
     Route: 055
  2. SYMBICORT [Suspect]
     Dosage: 80/4.5 ONE INHALATION DAILY
     Route: 055
  3. METHADONE HCL [Concomitant]
  4. SPIRIVA [Concomitant]
  5. CLONAZEPAM [Concomitant]
  6. CLONIDINE [Concomitant]
  7. NEURONTIN [Concomitant]
  8. CYMBALTA [Concomitant]
  9. AMITRIPTYLINE [Concomitant]

REACTIONS (1)
  - PSYCHOTIC DISORDER [None]
